FAERS Safety Report 6271336-7 (Version None)
Quarter: 2009Q3

REPORT INFORMATION
  Report Type: 
  Country: None (occurrence: None)
  Receive Date: 20090716
  Receipt Date: 20090716
  Transmission Date: 20100115
  Serious: Yes (Life-Threatening, Disabling)
  Sender: FDA-Public Use
  Company Number: None

PATIENT
  Sex: Male
  Weight: 3.2205 kg

DRUGS (1)
  1. PAXIL [Suspect]
     Dosage: THROUGH 9 MTHS PREG (NOT GIVEN IN HOSP)
     Dates: start: 20090612

REACTIONS (5)
  - CEREBROVASCULAR ACCIDENT [None]
  - CONVULSION NEONATAL [None]
  - INFANTILE APNOEIC ATTACK [None]
  - MATERNAL DRUGS AFFECTING FOETUS [None]
  - NEONATAL DISORDER [None]
